FAERS Safety Report 6370125-2 (Version None)
Quarter: 2009Q3

REPORT INFORMATION
  Report Type: 
  Country: None (occurrence: None)
  Receive Date: 20090923
  Receipt Date: 20070914
  Transmission Date: 20100115
  Serious: No
  Sender: FDA-Public Use
  Company Number: US-ASTRAZENECA-2006UW21936

PATIENT
  Age: 45 Year
  Sex: Male
  Weight: 107.5 kg

DRUGS (16)
  1. SEROQUEL [Suspect]
     Indication: ANXIETY
     Route: 048
     Dates: start: 20030701
  2. SEROQUEL [Suspect]
     Route: 048
     Dates: start: 20040101
  3. CLOZARIL [Concomitant]
     Dates: start: 19920101
  4. HALDOL [Concomitant]
     Dates: start: 19920101
  5. NAVANE [Concomitant]
     Dates: start: 19900101, end: 19920101
  6. STELAZINE [Concomitant]
  7. LEXAPRO [Concomitant]
     Dates: start: 20040101
  8. DIOVAN [Concomitant]
  9. TRICOR [Concomitant]
  10. METFORMIN HCL [Concomitant]
  11. ASPIRIN [Concomitant]
  12. ELAVIL [Concomitant]
  13. HYDROCHLOROTHIAZIDE [Concomitant]
  14. METOPROLOL TARTRATE [Concomitant]
  15. TYLENOL (CAPLET) [Concomitant]
  16. OXYCODONE [Concomitant]

REACTIONS (3)
  - BLOOD CHOLESTEROL INCREASED [None]
  - BLOOD TRIGLYCERIDES INCREASED [None]
  - DIABETES MELLITUS [None]
